FAERS Safety Report 15127876 (Version 2)
Quarter: 2018Q3

REPORT INFORMATION
  Report Type: Spontaneous
  Country: US (occurrence: US)
  Receive Date: 20180710
  Receipt Date: 20180803
  Transmission Date: 20181010
  Serious: No
  Sender: FDA-Public Use
  Company Number: PHEH2018US028556

PATIENT
  Sex: Female

DRUGS (2)
  1. VALTREX [Concomitant]
     Active Substance: VALACYCLOVIR HYDROCHLORIDE
     Indication: PRODUCT USED FOR UNKNOWN INDICATION
     Route: 065
  2. PROMACTA [Suspect]
     Active Substance: ELTROMBOPAG OLAMINE
     Indication: IMMUNE THROMBOCYTOPENIC PURPURA
     Dosage: 1 DF, QD (AN EMPTY STOMACH, ONE HOUR BEFORE OR 2 HOURS AFTER A MEAL)
     Route: 048
     Dates: start: 20180703

REACTIONS (2)
  - Diarrhoea [Not Recovered/Not Resolved]
  - Herpes zoster [Not Recovered/Not Resolved]
